FAERS Safety Report 14219728 (Version 2)
Quarter: 2018Q1

REPORT INFORMATION
  Report Type: Report from Study
  Country: DE (occurrence: DE)
  Receive Date: 20171123
  Receipt Date: 20180124
  Transmission Date: 20180508
  Serious: Yes (Other)
  Sender: FDA-Public Use
  Company Number: DE-AMGEN-DEUNI2017174542

PATIENT
  Age: 72 Year
  Sex: Male
  Weight: 61 kg

DRUGS (9)
  1. IRINOTECAN [Concomitant]
     Active Substance: IRINOTECAN
     Indication: COLORECTAL CANCER METASTATIC
     Dosage: 130 MG, UNK
     Route: 065
     Dates: start: 20170509
  2. PANTOZOL [Concomitant]
     Active Substance: PANTOPRAZOLE SODIUM
     Indication: PROPHYLAXIS
     Dosage: 40 MG, QD
     Route: 048
  3. TAMSULOSIN [Concomitant]
     Active Substance: TAMSULOSIN
     Indication: BENIGN PROSTATIC HYPERPLASIA
     Dosage: 0.4 MG, QD
     Route: 048
  4. FLUOROURACIL. [Concomitant]
     Active Substance: FLUOROURACIL
     Indication: COLORECTAL CANCER METASTATIC
     Dosage: 3350 MG, UNK
     Route: 042
     Dates: start: 20170509
  5. PANITUMUMAB [Suspect]
     Active Substance: PANITUMUMAB
     Indication: COLORECTAL CANCER METASTATIC
     Dosage: 350 MG, UNK
     Route: 042
     Dates: start: 20170509
  6. NEBIVOLOL. [Concomitant]
     Active Substance: NEBIVOLOL
     Dosage: 5 MG, QD
     Route: 048
  7. TORASEMID [Concomitant]
     Active Substance: TORSEMIDE
     Indication: HYPERTENSION
     Dosage: 10 MG, QD
     Route: 048
  8. FOLINIC ACID [Concomitant]
     Active Substance: LEUCOVORIN
     Indication: COLORECTAL CANCER METASTATIC
     Dosage: 850 MG, UNK
     Route: 065
     Dates: start: 20170509
  9. RAMIPRIL. [Concomitant]
     Active Substance: RAMIPRIL
     Indication: HYPERTENSION
     Dosage: 5 MG, BID
     Route: 048

REACTIONS (1)
  - Eczema [Not Recovered/Not Resolved]

NARRATIVE: CASE EVENT DATE: 20170517
